FAERS Safety Report 10558610 (Version 2)
Quarter: 2015Q1

REPORT INFORMATION
  Report Type: Spontaneous
  Country: US (occurrence: US)
  Receive Date: 20141031
  Receipt Date: 20150113
  Transmission Date: 20150720
  Serious: Yes (Life-Threatening, Hospitalization, Other)
  Sender: FDA-Public Use
  Company Number: US-ASTRAZENECA-2014SE81018

PATIENT
  Age: 23341 Day
  Sex: Male
  Weight: 108 kg

DRUGS (11)
  1. ACE INHIBITOR UNSPECIFIED UNK [Concomitant]
  2. BRILINTA [Suspect]
     Active Substance: TICAGRELOR
     Indication: STENT PLACEMENT
     Route: 048
  3. BRILINTA [Suspect]
     Active Substance: TICAGRELOR
     Indication: ANGINA UNSTABLE
     Route: 048
     Dates: start: 20141007, end: 20141011
  4. BETA BLOCKER UNSPECIFIED UNK [Concomitant]
  5. HYZACON [Concomitant]
     Indication: HYPERTENSION
     Dosage: 100/50 QD
     Route: 048
     Dates: start: 20050429
  6. ASPIRIN. [Suspect]
     Active Substance: ASPIRIN
     Indication: CORONARY ARTERY DISEASE
     Route: 048
     Dates: start: 20141007, end: 20141011
  7. STATIN UNSPECIFIED UNK [Concomitant]
  8. NORVASC [Concomitant]
     Active Substance: AMLODIPINE BESYLATE
     Indication: HYPERTENSION
     Route: 048
     Dates: start: 20050429
  9. BRILINTA [Suspect]
     Active Substance: TICAGRELOR
     Indication: ANGINA UNSTABLE
     Route: 048
  10. BRILINTA [Suspect]
     Active Substance: TICAGRELOR
     Indication: STENT PLACEMENT
     Route: 048
     Dates: start: 20141007, end: 20141011
  11. ATORVASTATIN [Concomitant]
     Active Substance: ATORVASTATIN
     Indication: HYPERLIPIDAEMIA
     Route: 048
     Dates: start: 20050429

REACTIONS (6)
  - Haemorrhage intracranial [Recovered/Resolved with Sequelae]
  - Intracranial haematoma [Recovered/Resolved with Sequelae]
  - Post procedural haemorrhage [Unknown]
  - Drug dose omission [Recovered/Resolved]
  - Haematuria [Recovered/Resolved]
  - Visual impairment [Not Recovered/Not Resolved]

NARRATIVE: CASE EVENT DATE: 20141007
